FAERS Safety Report 4634751-0 (Version None)
Quarter: 2005Q2

REPORT INFORMATION
  Report Type: 
  Country: None (occurrence: None)
  Receive Date: 20050412
  Receipt Date: 20050412
  Transmission Date: 20051028
  Serious: Yes (Life-Threatening, Hospitalization)
  Sender: FDA-Public Use
  Company Number: None

PATIENT
  Age: 33 Year
  Sex: Male
  Weight: 47.2 kg

DRUGS (5)
  1. SEROQUEL [Suspect]
     Dosage: 200 MG ORAL
     Route: 048
  2. TRAZODONE HCL [Concomitant]
  3. AMBIEN [Concomitant]
  4. TRILEPTAL [Concomitant]
  5. PAROXETINE HCL [Concomitant]

REACTIONS (3)
  - AGITATION [None]
  - FEELING HOT [None]
  - HYPERKINESIA [None]
